FAERS Safety Report 17885799 (Version 1)
Quarter: 2020Q2

REPORT INFORMATION
  Report Type: Spontaneous
  Country: DE (occurrence: DE)
  Receive Date: 20200611
  Receipt Date: 20200611
  Transmission Date: 20200714
  Serious: Yes (Other)
  Sender: FDA-Public Use
  Company Number: DE-PERRIGO-20DE008107

PATIENT
  Sex: Male
  Weight: 70.1 kg

DRUGS (1)
  1. ACETAMINOPHEN. [Suspect]
     Active Substance: ACETAMINOPHEN
     Indication: TOOTHACHE
     Dosage: 7.5 G PER DAY OVER 2 DAYS
     Route: 048

REACTIONS (2)
  - Hepatic failure [Recovering/Resolving]
  - Haemorrhage [Unknown]
